FAERS Safety Report 6824025-1 (Version None)
Quarter: 2010Q3

REPORT INFORMATION
  Report Type: 
  Country: None (occurrence: None)
  Receive Date: 20100708
  Receipt Date: 20061117
  Transmission Date: 20110219
  Serious: Yes (Other)
  Sender: FDA-Public Use
  Company Number: US-PFIZER INC-2006116029

PATIENT
  Sex: Female
  Weight: 48.53 kg

DRUGS (1)
  1. CHANTIX [Suspect]
     Indication: TOBACCO ABUSE
     Route: 048
     Dates: start: 20060902, end: 20060904

REACTIONS (3)
  - AMNESIA [None]
  - CONFUSIONAL STATE [None]
  - TOBACCO POISONING [None]
